FAERS Safety Report 8251677-4 (Version None)
Quarter: 2012Q2

REPORT INFORMATION
  Report Type: 
  Country: None (occurrence: None)
  Receive Date: 20120402
  Receipt Date: 20120326
  Transmission Date: 20120825
  Serious: Yes (Hospitalization, Other)
  Sender: FDA-Public Use
  Company Number: US-ABBOTT-12P-163-0908706-00

PATIENT
  Sex: Male
  Weight: 99 kg

DRUGS (3)
  1. HUMIRA [Suspect]
     Indication: RHEUMATOID ARTHRITIS
     Dates: start: 20110630, end: 20111101
  2. HUMIRA [Suspect]
     Dates: start: 20111122, end: 20120206
  3. PRILOSEC [Concomitant]
     Indication: GASTROOESOPHAGEAL REFLUX DISEASE

REACTIONS (8)
  - TRANSIENT ISCHAEMIC ATTACK [None]
  - SKIN DISCOLOURATION [None]
  - DRUG INEFFECTIVE [None]
  - DYSARTHRIA [None]
  - SUBCLAVIAN ARTERY THROMBOSIS [None]
  - CEREBRAL INFARCTION [None]
  - EMBOLISM [None]
  - CAROTID ARTERY STENOSIS [None]
